FAERS Safety Report 6325638-6 (Version None)
Quarter: 2009Q3

REPORT INFORMATION
  Report Type: 
  Country: None (occurrence: None)
  Receive Date: 20090824
  Receipt Date: 20090723
  Transmission Date: 20100115
  Serious: No
  Sender: FDA-Public Use
  Company Number: US-ABBOTT-09P-163-0586931-00

PATIENT
  Sex: Female
  Weight: 81.72 kg

DRUGS (32)
  1. NIASPAN [Suspect]
     Indication: BLOOD CHOLESTEROL INCREASED
     Dates: start: 20080301, end: 20081101
  2. NIASPAN [Suspect]
     Indication: BLOOD TRIGLYCERIDES INCREASED
     Dates: start: 20090701
  3. NIASPAN [Suspect]
  4. NIASPAN [Suspect]
     Dates: end: 20081101
  5. NIASPAN [Suspect]
     Dates: start: 20090701
  6. METAMUCIL [Concomitant]
     Indication: DRUG USE FOR UNKNOWN INDICATION
  7. ALBUTEROL [Concomitant]
     Indication: DRUG USE FOR UNKNOWN INDICATION
  8. SYMBICORT [Concomitant]
     Indication: DRUG USE FOR UNKNOWN INDICATION
  9. PRILOSEC [Concomitant]
     Indication: DRUG USE FOR UNKNOWN INDICATION
  10. REQUIP [Concomitant]
     Indication: DRUG USE FOR UNKNOWN INDICATION
  11. SPIRIVA [Concomitant]
     Indication: DRUG USE FOR UNKNOWN INDICATION
  12. TRICOR [Concomitant]
     Indication: DRUG USE FOR UNKNOWN INDICATION
  13. MINOCIN [Concomitant]
     Indication: DRUG USE FOR UNKNOWN INDICATION
  14. ARICEPT [Concomitant]
     Indication: DRUG USE FOR UNKNOWN INDICATION
  15. XANAX [Concomitant]
     Indication: DRUG USE FOR UNKNOWN INDICATION
  16. VIT E [Concomitant]
     Indication: DRUG USE FOR UNKNOWN INDICATION
  17. FISH OIL [Concomitant]
     Indication: DRUG USE FOR UNKNOWN INDICATION
  18. PLAVIX [Concomitant]
     Indication: DRUG USE FOR UNKNOWN INDICATION
  19. SYNTHROID [Concomitant]
     Indication: DRUG USE FOR UNKNOWN INDICATION
  20. DARVOCET [Concomitant]
     Indication: DRUG USE FOR UNKNOWN INDICATION
  21. ALLEGRA [Concomitant]
     Indication: DRUG USE FOR UNKNOWN INDICATION
  22. COZAAR [Concomitant]
     Indication: DRUG USE FOR UNKNOWN INDICATION
  23. COREG [Concomitant]
     Indication: DRUG USE FOR UNKNOWN INDICATION
  24. EFFEXOR [Concomitant]
     Indication: DRUG USE FOR UNKNOWN INDICATION
  25. NITROGLYCERIN [Concomitant]
     Indication: DRUG USE FOR UNKNOWN INDICATION
  26. NASACORT [Concomitant]
     Indication: DRUG USE FOR UNKNOWN INDICATION
  27. EPIPEN [Concomitant]
     Indication: DRUG USE FOR UNKNOWN INDICATION
  28. ESTRACE [Concomitant]
     Indication: DRUG USE FOR UNKNOWN INDICATION
  29. INDAPAMIDE [Concomitant]
     Indication: DRUG USE FOR UNKNOWN INDICATION
  30. CREEL FISH OIL [Concomitant]
     Indication: DRUG USE FOR UNKNOWN INDICATION
  31. CRESTOR [Concomitant]
     Indication: DRUG USE FOR UNKNOWN INDICATION
  32. ASPIRIN [Concomitant]
     Indication: DRUG USE FOR UNKNOWN INDICATION

REACTIONS (2)
  - FLUSHING [None]
  - HEPATIC ENZYME ABNORMAL [None]
